FAERS Safety Report 7415742-3 (Version None)
Quarter: 2011Q2

REPORT INFORMATION
  Report Type: 
  Country: None (occurrence: None)
  Receive Date: 20110406
  Receipt Date: 20110324
  Transmission Date: 20111010
  Serious: Yes (Other)
  Sender: FDA-Public Use
  Company Number: DSA_45307_2011

PATIENT
  Age: 46 Year
  Sex: Female

DRUGS (1)
  1. ELONTRIL (ELONTRIL - BUPROPION HYDROCHLORIDE) 300 MG (NOT SPECIFIED) [Suspect]
     Indication: SMOKING CESSATION THERAPY
     Dosage: 300 MG QD, ORAL
     Route: 048
     Dates: start: 20110222, end: 20110304

REACTIONS (5)
  - BLINDNESS [None]
  - CONSTIPATION [None]
  - NAUSEA [None]
  - PRURITUS [None]
  - INSOMNIA [None]
